FAERS Safety Report 4857175-X (Version None)
Quarter: 2005Q4

REPORT INFORMATION
  Report Type: 
  Country: None (occurrence: None)
  Receive Date: 20051219
  Receipt Date: 20050713
  Transmission Date: 20060501
  Serious: No
  Sender: FDA-Public Use
  Company Number: US-GLAXOSMITHKLINE-A0566031A

PATIENT
  Age: 58 Year
  Sex: Female

DRUGS (1)
  1. NICODERM CQ [Suspect]
     Dates: end: 20050710

REACTIONS (2)
  - GLOSSODYNIA [None]
  - TONGUE DISORDER [None]
